FAERS Safety Report 19973627 (Version 1)
Quarter: 2021Q4

REPORT INFORMATION
  Report Type: Report from Study
  Country: GB (occurrence: GB)
  Receive Date: 20211020
  Receipt Date: 20211020
  Transmission Date: 20220303
  Serious: Yes (Life-Threatening)
  Sender: FDA-Public Use
  Company Number: GB-MYLANLABS-2021M1073798

PATIENT
  Age: 4 Year
  Sex: Female

DRUGS (14)
  1. METHOTREXATE [Suspect]
     Active Substance: METHOTREXATE
     Indication: Peripheral T-cell lymphoma unspecified
     Dosage: UNK
     Route: 065
  2. CYTARABINE [Suspect]
     Active Substance: CYTARABINE
     Indication: Peripheral T-cell lymphoma unspecified
     Dosage: ALCL-99 PROTOCOL
     Route: 065
  3. DEXAMETHASONE [Suspect]
     Active Substance: DEXAMETHASONE
     Indication: Peripheral T-cell lymphoma unspecified
     Dosage: ALCL-99 PROTOCOL
     Route: 065
  4. DOXORUBICIN [Suspect]
     Active Substance: DOXORUBICIN
     Indication: Peripheral T-cell lymphoma unspecified
     Dosage: ALCL-99 PROTOCOL
     Route: 065
  5. LEUCOVORIN [Suspect]
     Active Substance: LEUCOVORIN
     Indication: Peripheral T-cell lymphoma unspecified
     Dosage: ALCL-99 PROTOCOL
     Route: 065
  6. HYDROCORTISONE [Suspect]
     Active Substance: HYDROCORTISONE
     Indication: Peripheral T-cell lymphoma unspecified
     Dosage: ALCL-99 PROTOCOL
     Route: 065
  7. ETOPOSIDE [Suspect]
     Active Substance: ETOPOSIDE
     Indication: Peripheral T-cell lymphoma unspecified
     Dosage: ALCL-99 PROTOCOL
     Route: 065
  8. ALEMTUZUMAB [Suspect]
     Active Substance: ALEMTUZUMAB
     Indication: Peripheral T-cell lymphoma unspecified
     Dosage: UNK
     Route: 065
  9. PENTOSTATIN [Suspect]
     Active Substance: PENTOSTATIN
     Indication: Peripheral T-cell lymphoma unspecified
     Dosage: UNK
     Route: 065
  10. MERCAPTOPURINE [Suspect]
     Active Substance: MERCAPTOPURINE
     Indication: Peripheral T-cell lymphoma unspecified
     Dosage: UNK
     Route: 065
  11. CYCLOPHOSPHAMIDE [Suspect]
     Active Substance: CYCLOPHOSPHAMIDE
     Indication: Peripheral T-cell lymphoma unspecified
     Dosage: ALCL-99 PROTOCOL
     Route: 065
  12. IFOSFAMIDE [Suspect]
     Active Substance: IFOSFAMIDE
     Indication: Peripheral T-cell lymphoma unspecified
     Dosage: ALCL-99 PROTOCOL
     Route: 065
  13. VINBLASTINE [Suspect]
     Active Substance: VINBLASTINE
     Indication: Peripheral T-cell lymphoma unspecified
     Dosage: ALCL-99 PROTOCOL
     Route: 065
  14. ROMIDEPSIN [Suspect]
     Active Substance: ROMIDEPSIN
     Indication: Peripheral T-cell lymphoma unspecified
     Dosage: RECEIVED OVER 4 HOURS ON DAYS 1, 8 AND 15 FOR TWO COURSES (6 DOSES)

REACTIONS (1)
  - Drug ineffective [Unknown]
